FAERS Safety Report 15452108 (Version 1)
Quarter: 2018Q4

REPORT INFORMATION
  Report Type: Spontaneous
  Country: IT (occurrence: IT)
  Receive Date: 20181001
  Receipt Date: 20181001
  Transmission Date: 20190204
  Serious: Yes (Other)
  Sender: FDA-Public Use
  Company Number: IT-SA-2018SA269374

PATIENT
  Age: 80 Year
  Sex: Female

DRUGS (9)
  1. BISOPROLOL HEMIFUMARATE [Concomitant]
     Active Substance: BISOPROLOL FUMARATE
     Dosage: 1.25 MG
  2. LASIX [Concomitant]
     Active Substance: FUROSEMIDE
  3. ZYLORIC [Concomitant]
     Active Substance: ALLOPURINOL
  4. LANSOX [Concomitant]
     Active Substance: LANSOPRAZOLE
  5. CLEXANE [Suspect]
     Active Substance: ENOXAPARIN SODIUM
     Indication: THROMBOSIS PROPHYLAXIS
     Route: 058
     Dates: start: 20180501, end: 20180610
  6. MESALAZINE [Concomitant]
     Active Substance: MESALAMINE
     Dosage: 2400 MG
     Route: 048
  7. PARAFFIN [Concomitant]
     Active Substance: PARAFFIN
  8. TAVOR (LORAZEPAM) [Concomitant]
     Active Substance: LORAZEPAM
  9. EUTIROX [Concomitant]
     Active Substance: LEVOTHYROXINE SODIUM

REACTIONS (3)
  - Anaemia [Unknown]
  - Melaena [Unknown]
  - Decubitus ulcer [Unknown]

NARRATIVE: CASE EVENT DATE: 20180610
